FAERS Safety Report 6217363-7 (Version None)
Quarter: 2009Q2

REPORT INFORMATION
  Report Type: 
  Country: None (occurrence: None)
  Receive Date: 20090608
  Receipt Date: 20080812
  Transmission Date: 20091009
  Serious: No
  Sender: FDA-Public Use
  Company Number: A0742431A

PATIENT
  Age: 68 Year
  Sex: Male

DRUGS (10)
  1. WELLBUTRIN XL [Suspect]
     Indication: DEPRESSION
     Dosage: 450MG PER DAY
     Route: 048
     Dates: start: 20080708
  2. LAMICTAL [Concomitant]
  3. TOPAMAX [Concomitant]
  4. XANAX [Concomitant]
  5. GEODON [Concomitant]
  6. LUNESTA [Concomitant]
  7. CARDURA [Concomitant]
  8. LEVOXYL [Concomitant]
  9. ACIPHEX [Concomitant]
  10. MOBIC [Concomitant]

REACTIONS (1)
  - INSOMNIA [None]
